FAERS Safety Report 6392522-1 (Version None)
Quarter: 2009Q4

REPORT INFORMATION
  Report Type: 
  Country: None (occurrence: None)
  Receive Date: 20091007
  Receipt Date: 20090929
  Transmission Date: 20100525
  Serious: Yes (Hospitalization)
  Sender: FDA-Public Use
  Company Number: PHHO2008BR01838

PATIENT
  Sex: Female
  Weight: 70 kg

DRUGS (10)
  1. STARLIX [Suspect]
     Indication: GLUCOSE TOLERANCE IMPAIRED
     Dosage: 60 MG, UNK
     Route: 048
     Dates: start: 20021128
  2. STARLIX [Suspect]
     Dosage: LEVEL 2
     Route: 048
     Dates: end: 20080106
  3. PLACEBO [Suspect]
     Dosage: LEVEL 1
     Route: 048
     Dates: start: 20021128
  4. PLACEBO [Suspect]
     Dosage: LEVEL 2
     Route: 048
     Dates: end: 20080106
  5. HYDROCHLOROTHIAZIDE [Suspect]
  6. AMLODIPINE [Suspect]
     Indication: HYPERTENSION
  7. CAPTOPRIL [Suspect]
     Indication: HYPERTENSION
  8. ACETYLSALICYLATE [Suspect]
  9. SIMVASTATIN [Suspect]
     Indication: DYSLIPIDAEMIA
  10. CARVEDILOL [Concomitant]
     Indication: ARRHYTHMIA

REACTIONS (7)
  - ABDOMINAL PAIN [None]
  - ARRHYTHMIA [None]
  - DISEASE PROGRESSION [None]
  - DYSPNOEA [None]
  - NAUSEA [None]
  - VENTRICULAR FIBRILLATION [None]
  - VENTRICULAR TACHYCARDIA [None]
